FAERS Safety Report 18899749 (Version 1)
Quarter: 2021Q1

REPORT INFORMATION
  Report Type: Spontaneous
  Country: US (occurrence: US)
  Receive Date: 20210216
  Receipt Date: 20210216
  Transmission Date: 20210420
  Serious: Yes (Hospitalization)
  Sender: FDA-Public Use
  Company Number: US-ARBOR PHARMACEUTICALS, LLC-US-2021ARB000172

PATIENT
  Sex: Female

DRUGS (1)
  1. ERY?PED [Suspect]
     Active Substance: ERYTHROMYCIN ETHYLSUCCINATE
     Indication: GASTROINTESTINAL MOTILITY DISORDER
     Dosage: 1 ML, TID
     Route: 048

REACTIONS (2)
  - Ileus [Unknown]
  - Off label use [Unknown]
